FAERS Safety Report 7080325-4 (Version None)
Quarter: 2010Q4

REPORT INFORMATION
  Report Type: 
  Country: None (occurrence: None)
  Receive Date: 20101103
  Receipt Date: 20101028
  Transmission Date: 20110411
  Serious: Yes (Death, Other)
  Sender: FDA-Public Use
  Company Number: GB-TEVA-253428ISR

PATIENT
  Age: 91 Year
  Sex: Female

DRUGS (4)
  1. DOXYCYCLINE [Suspect]
     Indication: INFECTION
     Route: 048
     Dates: start: 20090422, end: 20090422
  2. DOXYCYCLINE [Interacting]
     Route: 048
     Dates: start: 20090423
  3. INSULIN GLARGINE [Interacting]
     Indication: DIABETES MELLITUS
     Route: 058
     Dates: start: 20060301
  4. INSULIN GLARGINE [Interacting]
     Route: 058
     Dates: end: 20090513

REACTIONS (6)
  - APHASIA [None]
  - ASTHENIA [None]
  - DRUG INTERACTION [None]
  - HYPERGLYCAEMIA [None]
  - HYPOGLYCAEMIA [None]
  - MOBILITY DECREASED [None]
